FAERS Safety Report 16835931 (Version 2)
Quarter: 2020Q3

REPORT INFORMATION
  Report Type: Report from Study
  Country: US (occurrence: US)
  Receive Date: 20190920
  Receipt Date: 20200713
  Transmission Date: 20201102
  Serious: No
  Sender: FDA-Public Use
  Company Number: PHHY2019US214620

PATIENT
  Age: 42 Year
  Sex: Female

DRUGS (1)
  1. GILENYA [Suspect]
     Active Substance: FINGOLIMOD HYDROCHLORIDE
     Indication: MULTIPLE SCLEROSIS
     Dosage: UNK
     Route: 065
     Dates: start: 20190709

REACTIONS (1)
  - Electrocardiogram T wave abnormal [Recovered/Resolved]

NARRATIVE: CASE EVENT DATE: 20190709
